FAERS Safety Report 8252944-0 (Version None)
Quarter: 2012Q2

REPORT INFORMATION
  Report Type: 
  Country: None (occurrence: None)
  Receive Date: 20120402
  Receipt Date: 20120223
  Transmission Date: 20120825
  Serious: No
  Sender: FDA-Public Use
  Company Number: US-ABBOTT-12P-163-0908349-00

PATIENT
  Sex: Male
  Weight: 115.77 kg

DRUGS (2)
  1. ANDROGEL [Suspect]
     Indication: TESTIS CANCER
     Dosage: 1 PACKET, ONCE DAILY
     Dates: start: 20110101
  2. ANDROGEL [Suspect]
     Indication: BLOOD TESTOSTERONE DECREASED

REACTIONS (7)
  - FATIGUE [None]
  - MYALGIA [None]
  - PAIN [None]
  - PRODUCT PHYSICAL ISSUE [None]
  - INCORRECT DOSE ADMINISTERED [None]
  - BLOOD TESTOSTERONE DECREASED [None]
  - MUSCLE ATROPHY [None]
